FAERS Safety Report 19744247 (Version 1)
Quarter: 2021Q3

REPORT INFORMATION
  Report Type: Spontaneous
  Country: US (occurrence: US)
  Receive Date: 20210825
  Receipt Date: 20210825
  Transmission Date: 20211014
  Serious: Yes (Hospitalization)
  Sender: FDA-Public Use
  Company Number: US-BRISTOL-MYERS SQUIBB COMPANY-BMS-2021-084274

PATIENT
  Age: 39 Year
  Sex: Female

DRUGS (2)
  1. KENALOG [Suspect]
     Active Substance: TRIAMCINOLONE ACETONIDE
     Indication: TENDONITIS
     Dosage: 40 MILLIGRAM
     Route: 065
     Dates: start: 20191122
  2. LIDOCAINE. [Concomitant]
     Active Substance: LIDOCAINE
     Indication: TENDONITIS
     Dosage: 2 CC OF 1 PERCENT
     Route: 065
     Dates: start: 20191122

REACTIONS (1)
  - Pain [Unknown]

NARRATIVE: CASE EVENT DATE: 20191203
